FAERS Safety Report 25882285 (Version 5)
Quarter: 2025Q4

REPORT INFORMATION
  Report Type: Spontaneous
  Country: US (occurrence: US)
  Receive Date: 20251006
  Receipt Date: 20251106
  Transmission Date: 20260117
  Serious: No
  Sender: SANOFI AVENTIS
  Company Number: US-SANOFI-02669281

PATIENT
  Age: 82 Year
  Sex: Female

DRUGS (3)
  1. LANTUS SOLOSTAR [Suspect]
     Active Substance: INSULIN GLARGINE
     Indication: Type 2 diabetes mellitus
     Dosage: 14 IU, HS
     Dates: start: 2023
  2. LANTUS SOLOSTAR [Suspect]
     Active Substance: INSULIN GLARGINE
     Dosage: UNK
  3. METFORMIN [Concomitant]
     Active Substance: METFORMIN HYDROCHLORIDE
     Dosage: 1 DF, TID, 3 PILLS METFORMIN 500MG EACH.
     Route: 065

REACTIONS (5)
  - Injection site haemorrhage [Unknown]
  - Blood glucose increased [Unknown]
  - Drug dose omission by device [Unknown]
  - Device defective [Unknown]
  - Glycosylated haemoglobin increased [Unknown]
